FAERS Safety Report 15770434 (Version 2)
Quarter: 2019Q1

REPORT INFORMATION
  Report Type: Spontaneous
  Country: FR (occurrence: FR)
  Receive Date: 20181228
  Receipt Date: 20190102
  Transmission Date: 20190417
  Serious: Yes (Death, Hospitalization, Other)
  Sender: FDA-Public Use
  Company Number: FR-HORIZON-BUP-0086-2018

PATIENT
  Age: 7 Week
  Sex: Male

DRUGS (20)
  1. CLOBAZAM. [Concomitant]
     Active Substance: CLOBAZAM
  2. MILRINONE [Concomitant]
     Active Substance: MILRINONE
     Indication: CARDIAC DISORDER
     Dosage: 0.4 MICROGRAM/KG/MIN
     Dates: start: 20180810, end: 20180823
  3. ALBUMIN [Concomitant]
     Active Substance: ALBUMIN HUMAN
  4. MIDAZOLAM [Concomitant]
     Active Substance: MIDAZOLAM HYDROCHLORIDE
     Indication: SEDATION
     Dates: start: 20180821, end: 20180823
  5. SUFENTANIL [Concomitant]
     Active Substance: SUFENTANIL
     Indication: ANALGESIC THERAPY
     Dates: start: 20180808
  6. KETAMINE [Concomitant]
     Active Substance: KETAMINE
     Dosage: 1 MICROGRAM/KG/HOUR
     Dates: start: 20180808, end: 20180823
  7. OMEPRAZOLE. [Concomitant]
     Active Substance: OMEPRAZOLE
     Indication: PROPHYLAXIS
     Route: 048
     Dates: start: 20180808, end: 20180823
  8. SODIUM BENZOATE [Concomitant]
     Active Substance: SODIUM BENZOATE
  9. HYDROCORTISONE HEMISUCCINATE [Concomitant]
     Active Substance: HYDROCORTISONE HEMISUCCINATE
  10. DEOXYCHOLIC ACID [Concomitant]
     Active Substance: DEOXYCHOLIC ACID
     Indication: LIVER DISORDER
     Dates: start: 20180821, end: 20180823
  11. FUROSEMIDE. [Concomitant]
     Active Substance: FUROSEMIDE
     Indication: FLUID RETENTION
     Dates: start: 20180808, end: 20180823
  12. AMPHOTERICIN B. [Concomitant]
     Active Substance: AMPHOTERICIN B
  13. IMIPENEM [Concomitant]
     Active Substance: IMIPENEM
  14. AMMONAPS [Suspect]
     Active Substance: SODIUM PHENYLBUTYRATE
     Indication: HYPERAMMONAEMIA
     Dosage: 60 MG/KG, 1 IN 6 HR
     Dates: start: 20180819, end: 20180823
  15. VITAMIN K1 [Concomitant]
     Active Substance: PHYTONADIONE
  16. ORFADIN [Suspect]
     Active Substance: NITISINONE
     Indication: TYROSINAEMIA
     Dosage: 2MG/KG DAILY
     Dates: start: 20180817, end: 20180822
  17. NORADRENALIN [Concomitant]
     Active Substance: NOREPINEPHRINE\NOREPINEPHRINE BITARTRATE
     Indication: CARDIAC DISORDER
     Dosage: 4.8 MICROGRAM/KG/MIN
     Dates: start: 20180807, end: 20180823
  18. VANCOMYCIN [Concomitant]
     Active Substance: VANCOMYCIN
  19. VORICONAZOLE. [Concomitant]
     Active Substance: VORICONAZOLE
  20. ATRACURIUM [Concomitant]
     Active Substance: ATRACURIUM
     Indication: SEDATION
     Dates: start: 20180822, end: 20180823

REACTIONS (6)
  - Pulmonary haemorrhage [Not Recovered/Not Resolved]
  - Off label use [Unknown]
  - Hypoxia [Fatal]
  - Septic shock [Not Recovered/Not Resolved]
  - Disseminated intravascular coagulation [Not Recovered/Not Resolved]
  - Aspergillus infection [Not Recovered/Not Resolved]

NARRATIVE: CASE EVENT DATE: 20180808
